FAERS Safety Report 20993378 (Version 1)
Quarter: 2022Q2

REPORT INFORMATION
  Report Type: Spontaneous
  Country: US (occurrence: None)
  Receive Date: 20220621
  Receipt Date: 20220621
  Transmission Date: 20220721
  Serious: Yes (Life-Threatening, Other)
  Sender: FDA-Public Use
  Company Number: None

PATIENT
  Age: 69 Year
  Sex: Female
  Weight: 47.7 kg

DRUGS (13)
  1. PREGABALIN [Suspect]
     Active Substance: PREGABALIN
     Indication: Fibromyalgia
     Dosage: FREQUENCY : TWICE A DAY;?
     Route: 048
     Dates: start: 20220204
  2. PREGABALIN [Suspect]
     Active Substance: PREGABALIN
     Indication: Back pain
  3. Buprenorphrine [Concomitant]
  4. OXYCODONE [Concomitant]
     Active Substance: OXYCODONE
  5. LYRICA [Concomitant]
     Active Substance: PREGABALIN
  6. TRAZODONE [Concomitant]
     Active Substance: TRAZODONE HYDROCHLORIDE
  7. Sumatriptin [Concomitant]
  8. Tinazadine [Concomitant]
  9. CALCIUM [Concomitant]
     Active Substance: CALCIUM
  10. MK-7 [Concomitant]
  11. Black Elderberry [Concomitant]
  12. One Daily Multivitamin [Concomitant]
  13. VITAMIN D3 [Concomitant]
     Active Substance: CHOLECALCIFEROL

REACTIONS (14)
  - Product substitution issue [None]
  - Diarrhoea [None]
  - Nausea [None]
  - Palpitations [None]
  - Depression [None]
  - Anxiety [None]
  - Withdrawal syndrome [None]
  - Suicidal ideation [None]
  - Feeling abnormal [None]
  - Weight decreased [None]
  - Mental impairment [None]
  - Emotional distress [None]
  - Emotional distress [None]
  - Decreased appetite [None]

NARRATIVE: CASE EVENT DATE: 20220207
